FAERS Safety Report 23761316 (Version 1)
Quarter: 2024Q2

REPORT INFORMATION
  Report Type: Spontaneous
  Country: US (occurrence: None)
  Receive Date: 20240418
  Receipt Date: 20240418
  Transmission Date: 20240716
  Serious: Yes (Hospitalization)
  Sender: FDA-Public Use
  Company Number: None

PATIENT
  Age: 61 Year
  Sex: Female

DRUGS (4)
  1. VERZENIO [Suspect]
     Active Substance: ABEMACICLIB
     Indication: Breast cancer female
     Dosage: FREQUENCY : TWICE A DAY;?
     Route: 048
     Dates: start: 202308
  2. VERZENIO [Suspect]
     Active Substance: ABEMACICLIB
     Indication: Metastasis
  3. VERZENIO [Suspect]
     Active Substance: ABEMACICLIB
     Indication: Lymphadenopathy
  4. VERZENIO [Suspect]
     Active Substance: ABEMACICLIB
     Indication: Lymphoma

REACTIONS (1)
  - Pleural effusion [None]

NARRATIVE: CASE EVENT DATE: 20240410
